FAERS Safety Report 21348384 (Version 1)
Quarter: 2022Q3

REPORT INFORMATION
  Report Type: Spontaneous
  Country: US (occurrence: None)
  Receive Date: 20220916
  Receipt Date: 20220916
  Transmission Date: 20221027
  Serious: Yes (Hospitalization)
  Sender: FDA-Public Use
  Company Number: None

PATIENT
  Age: 69 Year
  Sex: Male
  Weight: 93.39 kg

DRUGS (21)
  1. TEMOZOLOMIDE [Suspect]
     Active Substance: TEMOZOLOMIDE
     Indication: Brain neoplasm malignant
     Dosage: 20MG DAILY ORAL
     Route: 048
     Dates: start: 202201
  2. TEMOZOLOMIDE [Suspect]
     Active Substance: TEMOZOLOMIDE
     Indication: Brain neoplasm malignant
     Dosage: 280MG DAILY ORAL
     Route: 048
     Dates: start: 202201
  3. ACYCLOVIR [Concomitant]
  4. ASPIRIN [Concomitant]
     Active Substance: ASPIRIN
  5. NITROSTAT SUBLINGUAL [Concomitant]
  6. COZAAR [Concomitant]
     Active Substance: LOSARTAN POTASSIUM
  7. CRANBERRY [Concomitant]
  8. FARXIGA [Concomitant]
     Active Substance: DAPAGLIFLOZIN PROPANEDIOL
  9. FOLIC ACID [Concomitant]
     Active Substance: FOLIC ACID
  10. LASIX [Concomitant]
     Active Substance: FUROSEMIDE
  11. METFORMIN [Concomitant]
  12. METOPROLOL TARTRATE [Concomitant]
  13. NORVASC [Concomitant]
     Active Substance: AMLODIPINE BESYLATE
  14. NOVOLOG [Concomitant]
  15. OMEPRAZOLE [Concomitant]
     Active Substance: OMEPRAZOLE
  16. TAMSULOSIN [Concomitant]
     Active Substance: TAMSULOSIN
  17. PROCHLORPERAZINE [Concomitant]
     Active Substance: PROCHLORPERAZINE
  18. TASIGNA [Concomitant]
     Active Substance: NILOTINIB
  19. TRESIBA [Concomitant]
     Active Substance: INSULIN DEGLUDEC
  20. VITAMIN D3 [Concomitant]
     Active Substance: CHOLECALCIFEROL
  21. ZOFRAN [Concomitant]
     Active Substance: ONDANSETRON HYDROCHLORIDE

REACTIONS (1)
  - Pneumonia [None]
